FAERS Safety Report 25766048 (Version 2)
Quarter: 2025Q4

REPORT INFORMATION
  Report Type: Spontaneous
  Country: US (occurrence: US)
  Receive Date: 20250905
  Receipt Date: 20251003
  Transmission Date: 20260118
  Serious: Yes (Hospitalization)
  Sender: DOMPE FARMACEUTICI
  Company Number: US-FARMAPROD-202407-2758

PATIENT
  Sex: Female

DRUGS (3)
  1. OXERVATE [Suspect]
     Active Substance: CENEGERMIN-BKBJ
     Indication: Neurotrophic keratopathy
     Route: 047
     Dates: start: 20240725, end: 20240917
  2. OXERVATE [Suspect]
     Active Substance: CENEGERMIN-BKBJ
  3. OXERVATE [Suspect]
     Active Substance: CENEGERMIN-BKBJ
     Route: 047
     Dates: start: 20250807

REACTIONS (10)
  - Syncope [Unknown]
  - Loss of consciousness [Unknown]
  - Electrolyte imbalance [Unknown]
  - Periorbital pain [Not Recovered/Not Resolved]
  - Intentional product misuse [Unknown]
  - Ocular discomfort [Unknown]
  - Asthenia [Unknown]
  - Decreased appetite [Unknown]
  - Eye pain [Unknown]
  - Urinary tract infection [Unknown]
